FAERS Safety Report 22606154 (Version 1)
Quarter: 2023Q2

REPORT INFORMATION
  Report Type: Spontaneous
  Country: IT (occurrence: IT)
  Receive Date: 20230615
  Receipt Date: 20230615
  Transmission Date: 20230721
  Serious: Yes (Other)
  Sender: FDA-Public Use
  Company Number: IT-002147023-NVSC2019IT079026

PATIENT
  Age: 64 Year
  Sex: Female

DRUGS (3)
  1. VOTRIENT [Suspect]
     Active Substance: PAZOPANIB HYDROCHLORIDE
     Indication: Metastatic renal cell carcinoma
     Dosage: 800 MG, QD
     Route: 065
  2. VOTRIENT [Suspect]
     Active Substance: PAZOPANIB HYDROCHLORIDE
     Indication: Clear cell renal cell carcinoma
     Dosage: 600 MG, QD
     Route: 065
  3. VOTRIENT [Suspect]
     Active Substance: PAZOPANIB HYDROCHLORIDE
     Dosage: 400 MG, QD
     Route: 065

REACTIONS (6)
  - Hypertension [Unknown]
  - Sarcoidosis [Unknown]
  - Hepatic function abnormal [Unknown]
  - Eyelash discolouration [Recovered/Resolved]
  - Diarrhoea [Unknown]
  - Asthenia [Unknown]
